FAERS Safety Report 16415061 (Version 1)
Quarter: 2019Q2

REPORT INFORMATION
  Report Type: Spontaneous
  Country: US (occurrence: US)
  Receive Date: 20190611
  Receipt Date: 20190611
  Transmission Date: 20190711
  Serious: No
  Sender: FDA-Public Use
  Company Number: US-SEPTODONT-201804925

PATIENT
  Age: 6 Decade
  Sex: Female

DRUGS (2)
  1. SEPTOCAINE AND EPINEPHRINE [Suspect]
     Active Substance: ARTICAINE HYDROCHLORIDE\EPINEPHRINE BITARTRATE
     Indication: DENTAL LOCAL ANAESTHESIA
     Dosage: DOSAGE OF 1-2 CARTRIDGES OR 68-136 MG. (APPROXIMATELY)
     Route: 004
     Dates: start: 201811, end: 201811
  2. NITROUS OXIDE / OXYGEN [Concomitant]
     Indication: ANXIETY
     Dates: start: 201811, end: 201811

REACTIONS (2)
  - Hypoaesthesia oral [Unknown]
  - Hypoaesthesia [Recovering/Resolving]

NARRATIVE: CASE EVENT DATE: 201811
